FAERS Safety Report 14940159 (Version 2)
Quarter: 2018Q3

REPORT INFORMATION
  Report Type: Spontaneous
  Country: US (occurrence: US)
  Receive Date: 20180525
  Receipt Date: 20180716
  Transmission Date: 20181010
  Serious: No
  Sender: FDA-Public Use
  Company Number: US-GLAXOSMITHKLINE-US2018089400

PATIENT
  Sex: Female

DRUGS (1)
  1. BREO ELLIPTA [Suspect]
     Active Substance: FLUTICASONE FUROATE\VILANTEROL TRIFENATATE
     Indication: ASTHMA
     Dosage: 1 PUFF(S), QD
     Dates: start: 2015

REACTIONS (6)
  - Drug dose omission [Unknown]
  - Dysphonia [Unknown]
  - Product quality issue [Unknown]
  - Dyspnoea [Unknown]
  - Wrong technique in device usage process [Unknown]
  - Cough [Unknown]
